FAERS Safety Report 13793313 (Version 5)
Quarter: 2018Q1

REPORT INFORMATION
  Report Type: Spontaneous
  Country: JP (occurrence: JP)
  Receive Date: 20170726
  Receipt Date: 20180206
  Transmission Date: 20180508
  Serious: Yes (Other)
  Sender: FDA-Public Use
  Company Number: JP-PFIZER INC-2017279816

PATIENT
  Age: 66 Year
  Sex: Male

DRUGS (1)
  1. INLYTA [Suspect]
     Active Substance: AXITINIB
     Indication: RENAL CANCER
     Dosage: 5 MG, DAILY
     Route: 048
     Dates: start: 201704

REACTIONS (5)
  - Proteinuria [Not Recovered/Not Resolved]
  - Arthralgia [Not Recovered/Not Resolved]
  - Dysphonia [Not Recovered/Not Resolved]
  - Cholecystitis [Not Recovered/Not Resolved]
  - Cholelithiasis [Not Recovered/Not Resolved]

NARRATIVE: CASE EVENT DATE: 20170612
